FAERS Safety Report 20733829 (Version 3)
Quarter: 2022Q2

REPORT INFORMATION
  Report Type: Report from Study
  Country: US (occurrence: US)
  Receive Date: 20220421
  Receipt Date: 20220602
  Transmission Date: 20220720
  Serious: Yes (Other)
  Sender: FDA-Public Use
  Company Number: US-BAUSCH-BL-2022-009451

PATIENT
  Age: 72 Year
  Sex: Male
  Weight: 74.4 kg

DRUGS (22)
  1. XIFAXAN [Suspect]
     Active Substance: RIFAXIMIN
     Indication: Hepatic encephalopathy
     Dosage: 6 REFILLS
     Route: 048
     Dates: start: 20210217
  2. XIFAXAN [Suspect]
     Active Substance: RIFAXIMIN
     Dosage: 3 REFILLS
     Route: 048
     Dates: start: 20210809, end: 20220222
  3. MYCIFRADIN [Concomitant]
     Active Substance: NEOMYCIN SULFATE
     Indication: Hepatic encephalopathy
     Dosage: 3 REFILLS, FOR 14 DAYS
     Route: 048
     Dates: start: 20211124, end: 20211208
  4. PROAIR HFA [Concomitant]
     Active Substance: ALBUTEROL SULFATE
     Indication: Dyspnoea
     Dosage: ACTUATION INHALER, INHALE 1-2 PUFFS , AS NEEDED
     Route: 055
  5. PROAIR HFA [Concomitant]
     Active Substance: ALBUTEROL SULFATE
     Indication: Wheezing
  6. ASPIRIN [Concomitant]
     Active Substance: ASPIRIN
     Indication: Product used for unknown indication
     Dosage: NIGHT
     Route: 048
  7. WELLBUTRIN XL [Concomitant]
     Active Substance: BUPROPION HYDROCHLORIDE
     Indication: Product used for unknown indication
     Dosage: EVERY MORNING
     Route: 048
     Dates: start: 20210112
  8. VITAMIN D3 [Concomitant]
     Active Substance: CHOLECALCIFEROL
     Indication: Product used for unknown indication
     Dosage: 5,000 UNITS, NIGHT
     Route: 048
  9. TRESIBA [Concomitant]
     Active Substance: INSULIN DEGLUDEC
     Indication: Product used for unknown indication
     Dosage: 100 UNIT/ML (3 ML), INSULIN PEN, INJECTS 30 UNITS AT NIGHT UNDER THE SKIN
     Route: 058
  10. HUMALOG KWIKPEN [Concomitant]
     Active Substance: INSULIN LISPRO
     Indication: Product used for unknown indication
     Dosage: 100 UNITS/ML INSULIN PEN, BEFORE MEALS NIGHT
     Dates: start: 20210629
  11. LACTULOSE [Concomitant]
     Active Substance: LACTULOSE
     Indication: Hepatic encephalopathy
     Dosage: 10G/15ML (15 ML)
     Route: 048
     Dates: start: 20210809
  12. LIDODERM [Concomitant]
     Active Substance: LIDOCAINE
     Indication: Pain
     Dosage: 5 % ADHESIVE PATCH, APPLY 1 PATCH TOPICAL DAILY AS NEEDED, REMOVE PATCH WITHIN 12 HRS OR AS PRN
     Route: 061
  13. COZAAR [Concomitant]
     Active Substance: LOSARTAN POTASSIUM
     Indication: Product used for unknown indication
     Dosage: NIGHTLY
     Route: 048
     Dates: start: 20160602
  14. CORGARD [Concomitant]
     Active Substance: NADOLOL
     Indication: Portal vein pressure increased
     Dosage: NIGHTLY
     Route: 048
     Dates: start: 20210528
  15. CORGARD [Concomitant]
     Active Substance: NADOLOL
     Indication: Portal hypertension
  16. PROTONIX [Concomitant]
     Active Substance: PANTOPRAZOLE SODIUM
     Indication: Gastrooesophageal reflux disease
     Route: 048
     Dates: start: 20210806, end: 20220302
  17. PAXIL CR [Concomitant]
     Active Substance: PAROXETINE HYDROCHLORIDE
     Indication: Product used for unknown indication
     Dosage: NIGHTLY
     Route: 048
     Dates: start: 20201026
  18. CRESTOR [Concomitant]
     Active Substance: ROSUVASTATIN CALCIUM
     Indication: Product used for unknown indication
     Dosage: EVERY OTHER DAY
     Route: 048
  19. SUTAB [Concomitant]
     Active Substance: MAGNESIUM SULFATE\POTASSIUM CHLORIDE\SODIUM SULFATE
     Indication: Product used for unknown indication
     Dosage: 1.479-0.188 GM TAB TAKE 1 KIT BY MOUTH AS NEEDED FOR MEDICATION USE ONLY
     Route: 048
     Dates: start: 20210408, end: 20220222
  20. VITAMIN E [Concomitant]
     Active Substance: .ALPHA.-TOCOPHEROL
     Indication: Non-alcoholic fatty liver
     Dosage: 400 UNITS, NIGHTLY,
     Route: 048
  21. FERROUS SULFATE ANHYDROUS [Concomitant]
     Active Substance: FERROUS SULFATE ANHYDROUS
     Indication: Iron deficiency
     Dosage: PRN, RECURRENT
     Route: 042
  22. MIRALAX [Concomitant]
     Active Substance: POLYETHYLENE GLYCOL 3350
     Indication: Constipation

REACTIONS (3)
  - Varices oesophageal [Recovering/Resolving]
  - Condition aggravated [Recovering/Resolving]
  - Insurance issue [Unknown]
